FAERS Safety Report 7318245-X (Version None)
Quarter: 2011Q1

REPORT INFORMATION
  Report Type: 
  Country: None (occurrence: None)
  Receive Date: 20110228
  Receipt Date: 20110216
  Transmission Date: 20110831
  Serious: No
  Sender: FDA-Public Use
  Company Number: US-BIOGENIDEC-2011BI006575

PATIENT
  Age: 52 Year
  Sex: Female

DRUGS (3)
  1. TYSABRI [Suspect]
     Indication: MULTIPLE SCLEROSIS
     Route: 042
     Dates: start: 20100318
  2. TYSABRI [Suspect]
     Route: 042
     Dates: start: 20050202
  3. TYSABRI [Suspect]
     Route: 042
     Dates: start: 20071018, end: 20090709

REACTIONS (1)
  - MOOD SWINGS [None]
